FAERS Safety Report 14073797 (Version 1)
Quarter: 2017Q4

REPORT INFORMATION
  Report Type: Spontaneous
  Country: US (occurrence: US)
  Receive Date: 20171010
  Receipt Date: 20171010
  Transmission Date: 20180321
  Serious: No
  Sender: FDA-Public Use
  Company Number: US-JNJFOC-20170829419

PATIENT
  Age: 91 Year
  Sex: Female
  Weight: 46.27 kg

DRUGS (3)
  1. TYLENOL EXTRA STRENGTH [Suspect]
     Active Substance: ACETAMINOPHEN
     Indication: SCIATICA
     Dosage: PAST 2 MONTHS
     Route: 065
     Dates: start: 2017
  2. TYLENOL EXTRA STRENGTH [Suspect]
     Active Substance: ACETAMINOPHEN
     Indication: BONE PAIN
     Dosage: PAST 2 MONTHS
     Route: 065
     Dates: start: 2017
  3. TYLENOL EXTRA STRENGTH [Suspect]
     Active Substance: ACETAMINOPHEN
     Indication: HEADACHE
     Dosage: PAST 2 MONTHS
     Route: 065
     Dates: start: 2017

REACTIONS (1)
  - Product use in unapproved indication [Unknown]
